FAERS Safety Report 22847235 (Version 2)
Quarter: 2024Q2

REPORT INFORMATION
  Report Type: Report from Study
  Country: US (occurrence: US)
  Receive Date: 20230822
  Receipt Date: 20240610
  Transmission Date: 20240715
  Serious: Yes (Other)
  Sender: FDA-Public Use
  Company Number: US-ABBVIE-5371383

PATIENT
  Sex: Male

DRUGS (1)
  1. LUPRON DEPOT [Suspect]
     Active Substance: LEUPROLIDE ACETATE
     Indication: Product used for unknown indication
     Route: 065
     Dates: start: 20220308

REACTIONS (8)
  - Hypophagia [Unknown]
  - Cystitis [Unknown]
  - Blood potassium decreased [Unknown]
  - Weight decreased [Unknown]
  - Memory impairment [Unknown]
  - Vomiting [Unknown]
  - Asthenia [Unknown]
  - Retching [Unknown]

NARRATIVE: CASE EVENT DATE: 20230101
